APPROVED DRUG PRODUCT: ANASTROZOLE
Active Ingredient: ANASTROZOLE
Strength: 1MG
Dosage Form/Route: TABLET;ORAL
Application: A212434 | Product #001 | TE Code: AB
Applicant: EUGIA PHARMA SPECIALITIES LTD
Approved: Jul 24, 2020 | RLD: No | RS: No | Type: RX